FAERS Safety Report 7583255-4 (Version None)
Quarter: 2011Q2

REPORT INFORMATION
  Report Type: 
  Country: None (occurrence: None)
  Receive Date: 20110630
  Receipt Date: 20110627
  Transmission Date: 20111010
  Serious: Yes (Death, Hospitalization)
  Sender: FDA-Public Use
  Company Number: US-ACTELION-A-NJ2011-50745

PATIENT

DRUGS (8)
  1. FLOLAN [Concomitant]
     Dosage: UNK
     Dates: start: 20101004, end: 20110101
  2. SILDENAFIL CITRATE [Concomitant]
  3. EPOPROSTENOL SODIUM [Suspect]
     Indication: PULMONARY ARTERIAL HYPERTENSION
     Dosage: 80 NG/KG, PER MIN
     Route: 041
     Dates: start: 20110610, end: 20110620
  4. FUROSEMIDE [Concomitant]
  5. EPOPROSTENOL SODIUM [Suspect]
     Dosage: UNK NG/KG, PER MIN
     Route: 041
     Dates: start: 20110428, end: 20110501
  6. CALCIUM CHANNEL BLOCKERS [Concomitant]
  7. SPIRONOLACTONE [Concomitant]
  8. WARFARIN SODIUM [Concomitant]

REACTIONS (4)
  - HEART RATE INCREASED [None]
  - DISEASE PROGRESSION [None]
  - URINARY TRACT INFECTION [None]
  - PULMONARY ARTERIAL HYPERTENSION [None]
